FAERS Safety Report 23347949 (Version 1)
Quarter: 2023Q4

REPORT INFORMATION
  Report Type: Report from Study
  Country: HK (occurrence: None)
  Receive Date: 20231228
  Receipt Date: 20231228
  Transmission Date: 20240109
  Serious: Yes (Hospitalization)
  Sender: FDA-Public Use
  Company Number: 2023A292122

PATIENT
  Age: 45 Year
  Sex: Female
  Weight: 43.6 kg

DRUGS (1)
  1. CILGAVIMAB\TIXAGEVIMAB [Suspect]
     Active Substance: CILGAVIMAB\TIXAGEVIMAB
     Indication: COVID-19
     Route: 030
     Dates: start: 20221220, end: 20221220

REACTIONS (3)
  - Pancytopenia [Recovered/Resolved]
  - Gastrointestinal toxicity [Recovered/Resolved]
  - Oesophagitis haemorrhagic [Recovered/Resolved]

NARRATIVE: CASE EVENT DATE: 20230710
